FAERS Safety Report 8785736 (Version 3)
Quarter: 2012Q4

REPORT INFORMATION
  Report Type: 
  Country: US (occurrence: US)
  Receive Date: 20120914
  Receipt Date: 20121222
  Transmission Date: 20130627
  Serious: Yes (Hospitalization, Other)
  Sender: FDA-Public Use
  Company Number: US-009507513-1209USA004003

PATIENT
  Age: 58 None
  Sex: Female

DRUGS (6)
  1. RIBAVIRIN [Suspect]
     Indication: HEPATITIS C
     Dosage: UNK
     Dates: start: 20120630, end: 20121123
  2. RIBAVIRIN [Suspect]
     Dosage: UNK
     Dates: start: 20110301, end: 20120229
  3. PEGINTRON [Suspect]
     Indication: HEPATITIS C
     Dosage: UNK
     Dates: start: 20120630, end: 20121123
  4. PEGASYS [Suspect]
     Indication: HEPATITIS C
     Dosage: UNK
     Dates: start: 20110301, end: 20120229
  5. PEGASYS [Suspect]
     Dosage: UNK
  6. TELAPREVIR [Suspect]
     Indication: HEPATITIS C
     Dosage: UNK
     Dates: start: 20120630, end: 20120922

REACTIONS (19)
  - Pain [Unknown]
  - Hepatitis C [Unknown]
  - Skin discomfort [Unknown]
  - Anaemia [Unknown]
  - Injection site rash [Unknown]
  - Red blood cell count decreased [Unknown]
  - Dry mouth [Unknown]
  - Reproductive tract disorder [Unknown]
  - Hysterectomy [Unknown]
  - Anaemia [Unknown]
  - Cerebrovascular accident [Unknown]
  - Convulsion [Unknown]
  - Memory impairment [Unknown]
  - Musculoskeletal disorder [Unknown]
  - White blood cell count decreased [Unknown]
  - Platelet count decreased [Unknown]
  - Fatigue [Unknown]
  - Headache [Unknown]
  - Leukopenia [Unknown]
